FAERS Safety Report 9426743 (Version 1)
Quarter: 2013Q3

REPORT INFORMATION
  Report Type: Spontaneous
  Country: US (occurrence: US)
  Receive Date: 20130730
  Receipt Date: 20130730
  Transmission Date: 20140515
  Serious: No
  Sender: FDA-Public Use
  Company Number: US-SANOFI-AVENTIS-2012SA091570

PATIENT
  Age: 52 Year
  Sex: Female
  Weight: 113 kg

DRUGS (13)
  1. AMBIEN [Suspect]
     Route: 048
  2. AUBAGIO [Concomitant]
     Route: 048
  3. SERTRALINE [Concomitant]
  4. CYMBALTA [Concomitant]
  5. GABAPENTIN [Concomitant]
  6. ATORVASTATIN [Concomitant]
  7. TYLENOL [Concomitant]
  8. MULTIVITAMINS [Concomitant]
  9. FISH OIL [Concomitant]
  10. VITAMIN D3 [Concomitant]
  11. KEFLEX [Concomitant]
  12. DEXLANSOPRAZOLE [Concomitant]
  13. DIAZEPAM [Concomitant]

REACTIONS (4)
  - Device related infection [Unknown]
  - Diarrhoea [Unknown]
  - Fatigue [Unknown]
  - Depression [Unknown]
